FAERS Safety Report 21936487 (Version 1)
Quarter: 2023Q1

REPORT INFORMATION
  Report Type: Report from Study
  Country: US (occurrence: US)
  Receive Date: 20230201
  Receipt Date: 20230201
  Transmission Date: 20230418
  Serious: No
  Sender: FDA-Public Use
  Company Number: US-INCYTE CORPORATION-2021IN000488

PATIENT

DRUGS (2)
  1. PEMIGATINIB [Suspect]
     Active Substance: PEMIGATINIB
     Indication: Cholangiocarcinoma
     Dosage: 13.5 MILLIGRAM, QAM (AT 9 AM WITH OR WITHOUT FOOD)
     Route: 065
     Dates: start: 20200108
  2. SODIUM FLUORIDE\SODIUM MONOFLUOROPHOSPHATE [Suspect]
     Active Substance: SODIUM FLUORIDE\SODIUM MONOFLUOROPHOSPHATE
     Indication: Product used for unknown indication
     Route: 065

REACTIONS (9)
  - Oral pain [Unknown]
  - Taste disorder [Unknown]
  - Muscle spasms [Unknown]
  - Pruritus [Unknown]
  - Headache [Unknown]
  - Fatigue [Recovering/Resolving]
  - Nausea [Unknown]
  - Diarrhoea [Unknown]
  - Blood phosphorus increased [Unknown]

NARRATIVE: CASE EVENT DATE: 20210115
